FAERS Safety Report 9939459 (Version 1)
Quarter: 2014Q1

REPORT INFORMATION
  Report Type: Report from Study
  Country: US (occurrence: US)
  Receive Date: 20140303
  Receipt Date: 20140303
  Transmission Date: 20141002
  Serious: No
  Sender: FDA-Public Use
  Company Number: US-ABBVIE-13P-163-1036515-00

PATIENT
  Age: 64 Year
  Sex: Female

DRUGS (10)
  1. HUMIRA [Suspect]
     Indication: COLITIS ULCERATIVE
     Dates: start: 20121030
  2. ASACOL [Concomitant]
     Indication: PRODUCT USED FOR UNKNOWN INDICATION
  3. PAROXETINE CR [Concomitant]
     Indication: DEPRESSION
     Dosage: 25 MG DAILY
  4. ALBUTEROL INHALER [Concomitant]
     Indication: ASTHMA
  5. FLONASE [Concomitant]
     Indication: HYPERSENSITIVITY
     Dosage: HASN^T USED IN MONTHS
  6. CENTRUM CHEWABLES [Concomitant]
     Indication: PRODUCT USED FOR UNKNOWN INDICATION
  7. CALCIUM [Concomitant]
     Indication: MINERAL SUPPLEMENTATION
  8. GARLIC [Concomitant]
     Indication: PRODUCT USED FOR UNKNOWN INDICATION
     Dosage: 200 MG DAILY
  9. VITAMIN D DROPS [Concomitant]
     Indication: PRODUCT USED FOR UNKNOWN INDICATION
     Dosage: 1 DROP DAILY
  10. OMEGA 3 FISH OIL [Concomitant]
     Indication: PRODUCT USED FOR UNKNOWN INDICATION
     Dosage: ONE TSP DAILY

REACTIONS (2)
  - Injection site pain [Recovering/Resolving]
  - Injection site reaction [Recovering/Resolving]
